FAERS Safety Report 22208747 (Version 1)
Quarter: 2023Q2

REPORT INFORMATION
  Report Type: Spontaneous
  Country: US (occurrence: None)
  Receive Date: 20230413
  Receipt Date: 20230413
  Transmission Date: 20230722
  Serious: Yes (Death)
  Sender: FDA-Public Use
  Company Number: None

PATIENT
  Sex: Male

DRUGS (8)
  1. VYNDAMAX [Suspect]
     Active Substance: TAFAMIDIS
     Route: 048
     Dates: start: 20200903
  2. ESOPHAGITIS [Concomitant]
  3. ORGAN-LIMITED AMYLOIDOSIS [Concomitant]
  4. ALLERGIES [Concomitant]
  5. ALLOPURINOL [Concomitant]
  6. AUGMENTIN SUS [Concomitant]
  7. AUGMENTIN [Concomitant]
  8. PENICILLINS [Concomitant]

REACTIONS (1)
  - Death [None]
